FAERS Safety Report 4362844-4 (Version None)
Quarter: 2004Q2

REPORT INFORMATION
  Report Type: 
  Country: None (occurrence: None)
  Receive Date: 20040518
  Receipt Date: 20040513
  Transmission Date: 20050107
  Serious: Yes (Life-Threatening, Hospitalization)
  Sender: FDA-Public Use
  Company Number: GBWYE763517MAY04

PATIENT
  Age: 57 Year
  Sex: Female

DRUGS (4)
  1. LODINE [Suspect]
     Indication: OSTEOARTHRITIS
     Dosage: ORAL
     Route: 048
     Dates: start: 19920201, end: 20040201
  2. OMEPRAZOLE [Concomitant]
  3. FRUSEMDIE (FUROSEMIDE) [Concomitant]
  4. LORATADINE [Concomitant]

REACTIONS (2)
  - NEPHROPATHY TOXIC [None]
  - RENAL FAILURE CHRONIC [None]
